FAERS Safety Report 17866688 (Version 1)
Quarter: 2020Q2

REPORT INFORMATION
  Report Type: Spontaneous
  Country: US (occurrence: US)
  Receive Date: 20200605
  Receipt Date: 20200605
  Transmission Date: 20200714
  Serious: No
  Sender: FDA-Public Use
  Company Number: US-SA-2020SA143196

PATIENT

DRUGS (2)
  1. ALLEGRA ALLERGY [Suspect]
     Active Substance: FEXOFENADINE HYDROCHLORIDE
     Indication: SINUSITIS
  2. MERCUROCHROME [Concomitant]
     Active Substance: BENZALKONIUM CHLORIDE
     Indication: SINUSITIS

REACTIONS (3)
  - Pain [Unknown]
  - Therapeutic product effect decreased [Unknown]
  - Unevaluable event [Unknown]
